FAERS Safety Report 12223351 (Version 2)
Quarter: 2016Q2

REPORT INFORMATION
  Report Type: Spontaneous
  Country: IE (occurrence: IE)
  Receive Date: 20160330
  Receipt Date: 20160415
  Transmission Date: 20160815
  Serious: Yes (Other)
  Sender: FDA-Public Use
  Company Number: IE-TEVA-639081ISR

PATIENT
  Age: 5 Year
  Sex: Female

DRUGS (1)
  1. LANSOPRAZOLE TEVA [Suspect]
     Active Substance: LANSOPRAZOLE
     Indication: REGURGITATION
     Dosage: 15 MILLIGRAM DAILY;
     Route: 048
     Dates: start: 20151001, end: 20160127

REACTIONS (1)
  - Visual impairment [Recovered/Resolved]

NARRATIVE: CASE EVENT DATE: 20160218
